FAERS Safety Report 13591174 (Version 1)
Quarter: 2017Q2

REPORT INFORMATION
  Report Type: Spontaneous
  Country: US (occurrence: US)
  Receive Date: 20170530
  Receipt Date: 20170530
  Transmission Date: 20170830
  Serious: No
  Sender: FDA-Public Use
  Company Number: None

PATIENT
  Age: 58 Year
  Sex: Male
  Weight: 79.5 kg

DRUGS (2)
  1. APREMILAST [Suspect]
     Active Substance: APREMILAST
     Indication: PSORIASIS
     Route: 048
     Dates: start: 20161116, end: 20161215
  2. APREMILAST [Suspect]
     Active Substance: APREMILAST
     Indication: PROSTATIC SPECIFIC ANTIGEN
     Route: 048
     Dates: start: 20161116, end: 20161215

REACTIONS (4)
  - Depression [None]
  - Stupor [None]
  - Suicidal ideation [None]
  - Confusional state [None]

NARRATIVE: CASE EVENT DATE: 20161215
